FAERS Safety Report 14980314 (Version 1)
Quarter: 2018Q2

REPORT INFORMATION
  Report Type: Spontaneous
  Country: FR (occurrence: FR)
  Receive Date: 20180606
  Receipt Date: 20180606
  Transmission Date: 20180711
  Serious: Yes (Life-Threatening, Hospitalization)
  Sender: FDA-Public Use
  Company Number: FR-TEVA-2018-FR-902311

PATIENT
  Age: 17 Year
  Sex: Male
  Weight: 67 kg

DRUGS (8)
  1. LEPTICUR 10 MG, COMPRIM? [Suspect]
     Active Substance: TROPATEPINE HYDROCHLORIDE
     Indication: SUICIDE ATTEMPT
     Route: 048
     Dates: start: 20180120, end: 20180120
  2. LOXAPAC 25 MG, COMPRIM? PELLICUL? [Suspect]
     Active Substance: LOXAPINE SUCCINATE
     Indication: SUICIDE ATTEMPT
     Route: 048
     Dates: start: 20180120, end: 20180120
  3. PAROXETINE. [Suspect]
     Active Substance: PAROXETINE
     Indication: SUICIDE ATTEMPT
     Route: 048
     Dates: start: 20180120, end: 20180120
  4. VALIUM ROCHE 10 MG, COMPRIM? S?CABLE [Concomitant]
     Dosage: 2 DOSAGE FORMS DAILY;
     Route: 048
  5. MOVICOL [Concomitant]
     Active Substance: POLYETHYLENE GLYCOL 3350\POTASSIUM CHLORIDE\SODIUM BICARBONATE\SODIUM CHLORIDE
     Dosage: 2 DOSAGE FORMS DAILY;
     Route: 048
  6. TERCIAN 40 MG/ML, SOLUTION BUVABLE EN GOUTTES [Concomitant]
     Active Substance: CYAMEMAZINE
     Dosage: 90 GTT DAILY;
     Route: 048
  7. THERALENE 4 POUR CENT, SOLUTION BUVABLE EN GOUTTES [Concomitant]
     Active Substance: TRIMEPRAZINE
     Route: 048
  8. LOXAPINE BASE [Concomitant]
     Active Substance: LOXAPINE
     Route: 048
     Dates: start: 20180120, end: 20180120

REACTIONS (7)
  - Serotonin syndrome [Recovered/Resolved]
  - Coma [Recovered/Resolved]
  - Myoclonus [Recovered/Resolved]
  - Psychomotor hyperactivity [Recovered/Resolved]
  - Hypertension [Recovered/Resolved]
  - Sinus tachycardia [Recovered/Resolved]
  - Hypertonia [Recovered/Resolved]

NARRATIVE: CASE EVENT DATE: 20180120
